FAERS Safety Report 5329523-8 (Version None)
Quarter: 2007Q1

REPORT INFORMATION
  Report Type: 
  Country: None (occurrence: None)
  Receive Date: 20070223
  Receipt Date: 20060407
  Transmission Date: 20070707
  Serious: Yes (Hospitalization, Other)
  Sender: FDA-Public Use
  Company Number: WAES 0604USA01087

PATIENT
  Age: 41 Year
  Sex: Male

DRUGS (2)
  1. ZOCOR [Suspect]
     Indication: BLOOD CHOLESTEROL
     Dosage: 20 MG/DAILY/PO
     Route: 048
     Dates: start: 20051001, end: 20060401
  2. NAPROXEN [Concomitant]

REACTIONS (1)
  - RHABDOMYOLYSIS [None]
